FAERS Safety Report 16470109 (Version 1)
Quarter: 2019Q2

REPORT INFORMATION
  Report Type: Spontaneous
  Country: US (occurrence: US)
  Receive Date: 20190514
  Receipt Date: 20190514
  Transmission Date: 20190713
  Serious: Yes (Hospitalization)
  Sender: FDA-Public Use
  Company Number: None

PATIENT
  Age: 63 Year
  Sex: Female
  Weight: 108 kg

DRUGS (9)
  1. ESCITALOPRAM [Concomitant]
     Active Substance: ESCITALOPRAM OXALATE
  2. DICLOFENAC [Concomitant]
     Active Substance: DICLOFENAC
  3. ATORVASTATIN [Suspect]
     Active Substance: ATORVASTATIN
     Route: 048
  4. HCTZ [Concomitant]
     Active Substance: HYDROCHLOROTHIAZIDE
  5. SPIRONOLACTONE. [Concomitant]
     Active Substance: SPIRONOLACTONE
  6. DAPTOMYCIN. [Suspect]
     Active Substance: DAPTOMYCIN
     Indication: ARTHRITIS BACTERIAL
     Dates: start: 20181002, end: 20181016
  7. LISINOPRIL. [Concomitant]
     Active Substance: LISINOPRIL
  8. DILTIAZEM. [Concomitant]
     Active Substance: DILTIAZEM
  9. FUROSEMIDE. [Concomitant]
     Active Substance: FUROSEMIDE

REACTIONS (4)
  - Rhabdomyolysis [None]
  - Polyuria [None]
  - Arthritis bacterial [None]
  - Treatment noncompliance [None]

NARRATIVE: CASE EVENT DATE: 20181016
